FAERS Safety Report 7823548 (Version 17)
Quarter: 2012Q4

REPORT INFORMATION
  Report Type: 
  Country: US (occurrence: US)
  Receive Date: 20110223
  Receipt Date: 20121022
  Transmission Date: 20130627
  Serious: Yes (Hospitalization, Disabling, Other)
  Sender: FDA-Public Use
  Company Number: US-009507513-1102USA02268

PATIENT

DRUGS (11)
  1. FOSAMAX [Suspect]
     Indication: OSTEOPENIA
     Dosage: 35 mg, QW
     Route: 048
     Dates: start: 20030415, end: 20040617
  2. FOSAMAX [Suspect]
     Indication: OSTEOPOROSIS
     Dosage: 70 mg, UNK
     Route: 048
     Dates: start: 20040923, end: 2009
  3. FOSAMAX D [Suspect]
     Indication: OSTEOPENIA
     Dosage: UNK UNK, QW
     Route: 048
     Dates: start: 20060427, end: 20081218
  4. FOSAMAX D [Suspect]
     Indication: OSTEOPOROSIS
     Dosage: 70mg/5600
     Route: 048
     Dates: start: 20070529, end: 20090224
  5. FOSAMAX D [Suspect]
     Dosage: 70mg/2800
     Route: 048
     Dates: start: 20080424
  6. CALCIUM (UNSPECIFIED) [Concomitant]
     Dosage: UNK UNK, qd
  7. PREMPRO [Concomitant]
     Dosage: UNK UNK, qd
     Dates: start: 20000309
  8. MK-9278 [Concomitant]
     Dosage: UNK UNK, qd
  9. ASCORBIC ACID [Concomitant]
     Dosage: 500 mg, qd
  10. VITAMIN E [Concomitant]
     Dosage: 400 U, qd
  11. ACTONEL [Suspect]
     Indication: OSTEOPENIA
     Dosage: 30 mg, UNK
     Dates: start: 200107, end: 200307

REACTIONS (33)
  - Femur fracture [Recovered/Resolved with Sequelae]
  - Pathological fracture [Recovered/Resolved with Sequelae]
  - Cough [Recovering/Resolving]
  - Rib fracture [Unknown]
  - Cervicobrachial syndrome [Unknown]
  - Carpal tunnel syndrome [Unknown]
  - Road traffic accident [Unknown]
  - Injury [Unknown]
  - Breast pain [Unknown]
  - Insomnia [Unknown]
  - Helicobacter test positive [Unknown]
  - Adverse drug reaction [Unknown]
  - Fall [Unknown]
  - Hypercholesterolaemia [Unknown]
  - Hypoaesthesia [Unknown]
  - Tooth disorder [Unknown]
  - Rotator cuff syndrome [Unknown]
  - Bursitis [Unknown]
  - Periarthritis [Unknown]
  - Piriformis syndrome [Unknown]
  - Intervertebral disc degeneration [Unknown]
  - Asthenia [Not Recovered/Not Resolved]
  - Pain in extremity [Recovered/Resolved]
  - Gastritis [Unknown]
  - Dyspepsia [Unknown]
  - Headache [Unknown]
  - Arthralgia [Recovered/Resolved]
  - Back pain [Unknown]
  - Oedema peripheral [Unknown]
  - Arthralgia [Unknown]
  - Neck pain [Unknown]
  - Pain in extremity [Recovered/Resolved]
  - Arthralgia [Unknown]
